FAERS Safety Report 4676038-6 (Version None)
Quarter: 2005Q2

REPORT INFORMATION
  Report Type: 
  Country: None (occurrence: None)
  Receive Date: 20050527
  Receipt Date: 20050427
  Transmission Date: 20051028
  Serious: No
  Sender: FDA-Public Use
  Company Number: US-GLAXOSMITHKLINE-A0556058A

PATIENT
  Age: 61 Year
  Sex: Female

DRUGS (5)
  1. WELLBUTRIN XL [Suspect]
     Indication: DEPRESSION
     Dosage: 150MG PER DAY
     Route: 048
     Dates: start: 20040310
  2. DEPAKOTE [Concomitant]
  3. PREMARIN [Concomitant]
  4. CALCIUM GLUCONATE [Concomitant]
  5. MULTI-VITAMINS [Concomitant]

REACTIONS (5)
  - DEPRESSION [None]
  - DRY EYE [None]
  - SOMNOLENCE [None]
  - TINNITUS [None]
  - VISION BLURRED [None]
